FAERS Safety Report 25519837 (Version 2)
Quarter: 2025Q4

REPORT INFORMATION
  Report Type: Report from Study
  Country: CN (occurrence: CN)
  Receive Date: 20250704
  Receipt Date: 20251024
  Transmission Date: 20260117
  Serious: Yes (Life-Threatening, Other)
  Sender: Vantive US Healthcare
  Company Number: CN-VANTIVE-2025VAN003010

PATIENT
  Age: 28 Year
  Sex: Male
  Weight: 70 kg

DRUGS (4)
  1. SODIUM CHLORIDE\SODIUM CITRATE, UNSPECIFIED FORM [Suspect]
     Active Substance: SODIUM CHLORIDE\SODIUM CITRATE, UNSPECIFIED FORM
     Indication: Acute kidney injury
     Dosage: 1500 ML/H (PRE-DILUTION MODE) (LOADING DOSE/FIRST DOSE WAS 1500 ML/H. MAINTENANCE DOSE/STABLE DOSE W
     Route: 042
     Dates: start: 20250621, end: 20250621
  2. DEXTROSE\LACTIC ACID\MAGNESIUM CL\POTASSIUM CL\SODIUM BICARBONATE\SODI [Suspect]
     Active Substance: DEXTROSE\LACTIC ACID\MAGNESIUM CHLORIDE\POTASSIUM CHLORIDE\SODIUM BICARBONATE\SODIUM CHLORIDE
     Indication: Acute kidney injury
     Dosage: 600 ML/H (POST-DILUTION MODE), INTRAVENOUS INFUSION
     Route: 042
     Dates: start: 20250621, end: 20250621
  3. UNSPECIFIED INGREDIENT [Suspect]
     Active Substance: UNSPECIFIED INGREDIENT
     Route: 065
  4. FRUCTOSE\GLYCERIN\SODIUM CHLORIDE [Concomitant]
     Active Substance: FRUCTOSE\GLYCERIN\SODIUM CHLORIDE
     Indication: Brain oedema
     Dosage: 250 ML, Q12H (EVERY 12 HOURS)
     Route: 042
     Dates: start: 20250621, end: 20250622

REACTIONS (4)
  - Generalised tonic-clonic seizure [Recovered/Resolved]
  - Seizure [Unknown]
  - Foaming at mouth [Unknown]
  - Dyspnoea [Unknown]

NARRATIVE: CASE EVENT DATE: 20250621
